FAERS Safety Report 7347968-1 (Version None)
Quarter: 2011Q1

REPORT INFORMATION
  Report Type: 
  Country: None (occurrence: None)
  Receive Date: 20110311
  Receipt Date: 20110303
  Transmission Date: 20110831
  Serious: Yes (Other)
  Sender: FDA-Public Use
  Company Number: NO-BAYER-2011-017910

PATIENT
  Sex: Female
  Weight: 53 kg

DRUGS (1)
  1. MIRENA [Suspect]
     Indication: PRODUCT USED FOR UNKNOWN INDICATION
     Dosage: UNK
     Dates: start: 20110224, end: 20110224

REACTIONS (3)
  - UTERINE PERFORATION [None]
  - DEVICE DIFFICULT TO USE [None]
  - PAIN [None]
